FAERS Safety Report 9112833 (Version 1)
Quarter: 2013Q1

REPORT INFORMATION
  Report Type: Spontaneous
  Country: US (occurrence: US)
  Receive Date: 20130211
  Receipt Date: 20130211
  Transmission Date: 20140127
  Serious: Yes (Death, Hospitalization, Other)
  Sender: FDA-Public Use
  Company Number: US-BAXTER-2013BAX002759

PATIENT
  Age: 71 Year
  Sex: Male

DRUGS (3)
  1. DIANEAL LOW CALCIUM [Suspect]
     Indication: PERITONEAL DIALYSIS
     Route: 033
     Dates: end: 20130102
  2. DIANEAL LOW CALCIUM (ULTRABAG) [Suspect]
     Indication: PERITONEAL DIALYSIS
     Route: 033
     Dates: start: 20010709, end: 20130102
  3. EXTRANEAL [Suspect]
     Indication: PERITONEAL DIALYSIS
     Route: 033
     Dates: end: 20130102

REACTIONS (7)
  - Myocardial infarction [Fatal]
  - Medical induction of coma [Fatal]
  - Sepsis [Fatal]
  - Post procedural complication [Fatal]
  - No therapeutic response [Unknown]
  - Peritonitis bacterial [Unknown]
  - Impaired self-care [Unknown]
